FAERS Safety Report 6179570-1 (Version None)
Quarter: 2009Q2

REPORT INFORMATION
  Report Type: 
  Country: None (occurrence: None)
  Receive Date: 20090501
  Receipt Date: 20090501
  Transmission Date: 20091009
  Serious: Yes (Other)
  Sender: FDA-Public Use
  Company Number: None

PATIENT
  Sex: Male
  Weight: 87.5442 kg

DRUGS (1)
  1. AVELOX [Suspect]
     Indication: PNEUMONIA
     Dosage: 1 TABLET DAILY PO
     Route: 048
     Dates: start: 20090211, end: 20090215

REACTIONS (12)
  - ANXIETY [None]
  - APHASIA [None]
  - ARTHRALGIA [None]
  - BACK PAIN [None]
  - CONFUSIONAL STATE [None]
  - HALLUCINATION [None]
  - JOINT SWELLING [None]
  - NIGHT SWEATS [None]
  - PAIN [None]
  - PYREXIA [None]
  - RASH [None]
  - THERAPEUTIC AGENT TOXICITY [None]
